FAERS Safety Report 4721359-1 (Version None)
Quarter: 2005Q3

REPORT INFORMATION
  Report Type: 
  Country: None (occurrence: None)
  Receive Date: 20050721
  Receipt Date: 20040719
  Transmission Date: 20060218
  Serious: No
  Sender: FDA-Public Use
  Company Number: US-BRISTOL-MYERS SQUIBB COMPANY-12643607

PATIENT
  Age: 69 Year
  Sex: Female
  Weight: 77 kg

DRUGS (3)
  1. COUMADIN [Suspect]
     Indication: ATRIAL FIBRILLATION
     Dosage: UNKNOWN TO 04-JUN-2004: 2.5MG DAILY RESTARTED 06-JUN-2004 TO CONTINUING: 1.25MG DAILY
     Route: 048
  2. NAMENDA [Interacting]
     Indication: DEMENTIA ALZHEIMER'S TYPE
     Dosage: 09 - 15-APR-2004: 5MG/D 16 - 22-APR-2004: 10MG/D 23 - 29-APR-2004: 15MG/D 30-APR-2004: 20MG/D
     Route: 048
     Dates: start: 20040409
  3. REMINYL [Concomitant]

REACTIONS (3)
  - ANTICOAGULATION DRUG LEVEL ABOVE THERAPEUTIC [None]
  - DERMATITIS CONTACT [None]
  - DRUG INTERACTION [None]
